FAERS Safety Report 6330979-2 (Version None)
Quarter: 2009Q3

REPORT INFORMATION
  Report Type: 
  Country: None (occurrence: None)
  Receive Date: 20090827
  Receipt Date: 20090821
  Transmission Date: 20100115
  Serious: Yes (Other)
  Sender: FDA-Public Use
  Company Number: US-ELI_LILLY_AND_COMPANY-US200908004785

PATIENT
  Sex: Male

DRUGS (6)
  1. HUMALOG [Suspect]
  2. PRAVASTATIN [Concomitant]
  3. HYDROCHLOROTHIAZIDE [Concomitant]
  4. SYNTHROID [Concomitant]
  5. NORVASC [Concomitant]
  6. SINGULAIR [Concomitant]

REACTIONS (2)
  - AMNESIA [None]
  - CORONARY ARTERY BYPASS [None]
